FAERS Safety Report 13910692 (Version 3)
Quarter: 2017Q3

REPORT INFORMATION
  Report Type: Spontaneous
  Country: JP (occurrence: JP)
  Receive Date: 20170828
  Receipt Date: 20170926
  Transmission Date: 20171127
  Serious: Yes (Other)
  Sender: FDA-Public Use
  Company Number: JP-PFIZER INC-2017366199

PATIENT
  Age: 59 Year
  Sex: Male

DRUGS (1)
  1. NAB-PACLITAXEL [Suspect]
     Active Substance: PACLITAXEL
     Indication: NON-SMALL CELL LUNG CANCER STAGE IIIB
     Dosage: UNK, CYCLIC (THIRD-LINE REGIMEN)

REACTIONS (1)
  - Interstitial lung disease [Recovering/Resolving]
